FAERS Safety Report 9605927 (Version 2)
Quarter: 2014Q1

REPORT INFORMATION
  Report Type: Spontaneous
  Country: US (occurrence: US)
  Receive Date: 20131008
  Receipt Date: 20140306
  Transmission Date: 20141002
  Serious: Yes (Other)
  Sender: FDA-Public Use
  Company Number: CHPA2013US015300

PATIENT
  Sex: Female

DRUGS (5)
  1. VOLTAREN GEL [Suspect]
     Indication: ARTHRALGIA
     Dosage: UNK, 2-3 TIMES A DAY
     Route: 061
  2. VOLTAREN GEL [Suspect]
     Indication: NECK PAIN
  3. VOLTAREN GEL [Suspect]
     Indication: CARPAL TUNNEL SYNDROME
  4. VOLTAREN GEL [Suspect]
     Indication: OFF LABEL USE
  5. EXCEDRIN EXTRA STRENGTH [Suspect]
     Indication: PAIN
     Dosage: UNK, PRN

REACTIONS (6)
  - Carpal tunnel syndrome [Unknown]
  - Fall [Recovered/Resolved]
  - Nail injury [Recovered/Resolved]
  - Drug administered at inappropriate site [Unknown]
  - Drug dispensed to wrong patient [Unknown]
  - Therapeutic response unexpected [Unknown]
